FAERS Safety Report 10601730 (Version 1)
Quarter: 2014Q4

REPORT INFORMATION
  Report Type: Spontaneous
  Country: GB (occurrence: None)
  Receive Date: 20141120
  Receipt Date: 20141120
  Transmission Date: 20150529
  Serious: Yes (Hospitalization, Other)
  Sender: FDA-Public Use
  Company Number: FK201405330

PATIENT
  Age: 92 Year
  Sex: Female

DRUGS (3)
  1. FUROSEMIDE (MANUFACTURER UNKNOWN) (FUROSEMIDE) (FUROSEMIDE) [Suspect]
     Active Substance: FUROSEMIDE
     Indication: CARDIAC FAILURE
     Route: 048
     Dates: end: 20121228
  2. ANTIBIOTICS (ANTIBIOTICS) [Concomitant]
     Active Substance: UNSPECIFIED INGREDIENT
  3. SPIRONOLACTONE (SPIRONOLACTONE) [Suspect]
     Active Substance: SPIRONOLACTONE
     Indication: CARDIAC FAILURE
     Route: 048
     Dates: end: 20121228

REACTIONS (6)
  - Suprapubic pain [None]
  - Lower respiratory tract infection [None]
  - Nephropathy toxic [None]
  - Acute kidney injury [None]
  - Confusional state [None]
  - Coma scale abnormal [None]
